FAERS Safety Report 8037147-7 (Version None)
Quarter: 2012Q1

REPORT INFORMATION
  Report Type: 
  Country: None (occurrence: None)
  Receive Date: 20120111
  Receipt Date: 20120106
  Transmission Date: 20120608
  Serious: Yes (Other)
  Sender: FDA-Public Use
  Company Number: US-PFIZER INC-2011040400

PATIENT
  Sex: Male

DRUGS (1)
  1. CHANTIX [Suspect]
     Indication: SMOKING CESSATION THERAPY
     Dosage: 0.5 MG AND 1.0 MG
     Dates: start: 20090630, end: 20100701

REACTIONS (8)
  - SUICIDE ATTEMPT [None]
  - DEPRESSION [None]
  - SCAR [None]
  - PAIN IN EXTREMITY [None]
  - PHYSICAL ASSAULT [None]
  - INTENTIONAL OVERDOSE [None]
  - INJURY [None]
  - VICTIM OF CRIME [None]
